FAERS Safety Report 9914021 (Version 2)
Quarter: 2014Q2

REPORT INFORMATION
  Report Type: Spontaneous
  Country: US (occurrence: US)
  Receive Date: 20140220
  Receipt Date: 20140416
  Transmission Date: 20141212
  Serious: Yes (Death, Hospitalization)
  Sender: FDA-Public Use
  Company Number: US-GLAXOSMITHKLINE-A1061584A

PATIENT
  Age: 66 Year
  Sex: Female

DRUGS (4)
  1. VOTRIENT [Suspect]
     Indication: RENAL CANCER
     Dosage: 800MG PER DAY
     Route: 048
     Dates: start: 20131029, end: 20140121
  2. AMBIEN [Concomitant]
  3. XANAX [Concomitant]
  4. PRILOSEC [Concomitant]

REACTIONS (2)
  - Renal cell carcinoma [Fatal]
  - Vomiting [Unknown]
